FAERS Safety Report 9776031 (Version 2)
Quarter: 2014Q1

REPORT INFORMATION
  Report Type: Report from Study
  Country: US (occurrence: US)
  Receive Date: 20131220
  Receipt Date: 20140305
  Transmission Date: 20141002
  Serious: Yes (Hospitalization)
  Sender: FDA-Public Use
  Company Number: US-MPIJNJ-2013MPI001353

PATIENT
  Age: 61 Year
  Sex: Male
  Weight: 86.5 kg

DRUGS (10)
  1. VELCADE [Suspect]
     Indication: PLASMA CELL MYELOMA
     Dosage: 1.3 MG/M2, ON DAYS 1, 4, 8 AND 11
     Route: 058
     Dates: start: 20131122, end: 20131202
  2. DEXAMETHASONE [Suspect]
     Indication: PLASMA CELL MYELOMA
     Dosage: 40 MG, ON DAYS 1, 4, 8 AND 11
     Route: 048
     Dates: start: 20131122, end: 20131202
  3. ATENOLOL [Concomitant]
     Dosage: 50 MG, QD
     Route: 048
  4. LOSARTAN [Concomitant]
     Dosage: 100 MG, QD
     Route: 048
  5. NORVASC [Concomitant]
     Dosage: 5 MG, QD
     Route: 048
  6. MOTRIN [Concomitant]
     Dosage: 800 MG, BID
     Route: 048
  7. XANAX [Concomitant]
     Dosage: 0.25 MG, UNK
     Route: 048
  8. OXYCODONE [Concomitant]
     Dosage: 10 MG, Q6HR
  9. COLACE [Concomitant]
     Dosage: 100 MG, TID
  10. SENNA                              /00142201/ [Concomitant]
     Dosage: 8.6 MG, BID

REACTIONS (2)
  - Pain [Recovering/Resolving]
  - Pathological fracture [Recovering/Resolving]
